FAERS Safety Report 8171169-0 (Version None)
Quarter: 2012Q1

REPORT INFORMATION
  Report Type: 
  Country: None (occurrence: None)
  Receive Date: 20120228
  Receipt Date: 20111128
  Transmission Date: 20120608
  Serious: No
  Sender: FDA-Public Use
  Company Number: US-BRISTOL-MYERS SQUIBB COMPANY-16257594

PATIENT

DRUGS (1)
  1. ONGLYZA [Suspect]

REACTIONS (3)
  - RENAL DISORDER [None]
  - CONSTIPATION [None]
  - BLOOD GLUCOSE INCREASED [None]
